FAERS Safety Report 15821693 (Version 1)
Quarter: 2019Q1

REPORT INFORMATION
  Report Type: Spontaneous
  Country: US (occurrence: US)
  Receive Date: 20190114
  Receipt Date: 20190114
  Transmission Date: 20190417
  Serious: No
  Sender: FDA-Public Use
  Company Number: US-PARI RESPIRATORY EQUIPMENT, INC.-2018PAR00065

PATIENT
  Age: 49 Year
  Sex: Female
  Weight: 72.56 kg

DRUGS (4)
  1. KALYDECO [Concomitant]
     Active Substance: IVACAFTOR
  2. KITABIS PAK [Suspect]
     Active Substance: TOBRAMYCIN
     Dosage: 300 MG, 2X/DAY; 1 MONTH ON AND 1 MONTH OFF
     Route: 055
     Dates: start: 201801, end: 201801
  3. KITABIS PAK [Suspect]
     Active Substance: TOBRAMYCIN
     Indication: INFECTIOUS DISEASE CARRIER
     Dosage: 300 MG, 2X/DAY; 1 MONTH ON AND 1 MONTH OFF
     Route: 055
     Dates: start: 201711, end: 201711
  4. PULMOZYME [Concomitant]
     Active Substance: DORNASE ALFA

REACTIONS (1)
  - Cough [Recovered/Resolved]

NARRATIVE: CASE EVENT DATE: 201801
